FAERS Safety Report 5165589-6 (Version None)
Quarter: 2006Q4

REPORT INFORMATION
  Report Type: 
  Country: None (occurrence: None)
  Receive Date: 20061206
  Receipt Date: 20061128
  Transmission Date: 20070319
  Serious: Yes (Hospitalization)
  Sender: FDA-Public Use
  Company Number: RU-GLAXOSMITHKLINE-B0449101A

PATIENT
  Age: 13 Year
  Sex: Female
  Weight: 55 kg

DRUGS (2)
  1. FLIXONASE [Suspect]
     Indication: SEASONAL ALLERGY
     Route: 045
     Dates: start: 20060715, end: 20060901
  2. LORATADINE [Concomitant]
     Indication: SEASONAL ALLERGY
     Dosage: 10MG PER DAY
     Dates: start: 20060715

REACTIONS (3)
  - CHRONIC SINUSITIS [None]
  - DRUG INEFFECTIVE [None]
  - PHARMACEUTICAL PRODUCT COMPLAINT [None]
